FAERS Safety Report 6414716-9 (Version None)
Quarter: 2009Q4

REPORT INFORMATION
  Report Type: 
  Country: None (occurrence: None)
  Receive Date: 20091026
  Receipt Date: 20091026
  Transmission Date: 20100525
  Serious: Yes (Life-Threatening, Hospitalization)
  Sender: FDA-Public Use
  Company Number: None

PATIENT
  Age: 20 Year
  Sex: Male
  Weight: 77.5651 kg

DRUGS (1)
  1. ZICAM ZINC ZICAM LLC, SCOTTSDALE AZ [Suspect]
     Indication: NASOPHARYNGITIS
     Dosage: ONE TAB ONCE ORAL
     Route: 048
     Dates: start: 20091020

REACTIONS (6)
  - HEADACHE [None]
  - MUSCULOSKELETAL STIFFNESS [None]
  - MYALGIA [None]
  - NECK PAIN [None]
  - PYREXIA [None]
  - RESPIRATORY RATE INCREASED [None]
